FAERS Safety Report 19618649 (Version 2)
Quarter: 2022Q2

REPORT INFORMATION
  Report Type: Spontaneous
  Country: US (occurrence: None)
  Receive Date: 20210727
  Receipt Date: 20220621
  Transmission Date: 20220721
  Serious: No
  Sender: FDA-Public Use
  Company Number: US-ROCHE-2804125

PATIENT
  Age: 49 Year
  Sex: Male

DRUGS (2)
  1. XELODA [Suspect]
     Active Substance: CAPECITABINE
     Indication: Product used for unknown indication
     Dosage: TAKE 3 TABLETS BY MOUTH TWICE A DAY, THREE TABLETS AFTER BREAKFAST AND 4 TABLETS AFTER SUPPER, 14 DA
     Route: 048
     Dates: start: 202101
  2. ONDANSETRON [Concomitant]
     Active Substance: ONDANSETRON
     Route: 048

REACTIONS (2)
  - COVID-19 [Unknown]
  - Palmar-plantar erythrodysaesthesia syndrome [Unknown]

NARRATIVE: CASE EVENT DATE: 20210322
